FAERS Safety Report 7321742-4 (Version None)
Quarter: 2011Q1

REPORT INFORMATION
  Report Type: 
  Country: None (occurrence: None)
  Receive Date: 20110228
  Receipt Date: 20110222
  Transmission Date: 20110831
  Serious: Yes (Hospitalization)
  Sender: FDA-Public Use
  Company Number: CHPA2011US03142

PATIENT
  Age: 73 Year
  Sex: Female
  Weight: 102.4 kg

DRUGS (2)
  1. BENEFIBER W/ WHEAT DEXTRIN [Suspect]
     Dosage: 5-6 TABLESPOON A DAY
     Route: 048
     Dates: start: 20110201, end: 20110201
  2. BENEFIBER W/ WHEAT DEXTRIN [Suspect]
     Indication: DIARRHOEA
     Dosage: 4-5 TABLESPOONS PER DAY
     Route: 048
     Dates: start: 20100101, end: 20100101

REACTIONS (4)
  - INTESTINAL OBSTRUCTION [None]
  - DRUG INEFFECTIVE FOR UNAPPROVED INDICATION [None]
  - THERAPEUTIC RESPONSE UNEXPECTED [None]
  - OVERDOSE [None]
